FAERS Safety Report 4494665-6 (Version None)
Quarter: 2004Q4

REPORT INFORMATION
  Report Type: 
  Country: None (occurrence: None)
  Receive Date: 20041103
  Receipt Date: 20041020
  Transmission Date: 20050328
  Serious: Yes (Disabling, Other)
  Sender: FDA-Public Use
  Company Number: 2004-01-0968

PATIENT
  Sex: Male

DRUGS (1)
  1. BOOTS HAYFEVER RELIEF (LORATADINE) TABLETS [Suspect]
     Indication: SEASONAL ALLERGY
     Dosage: 10MG QD ORAL
     Route: 048
     Dates: start: 20030501, end: 20030701

REACTIONS (2)
  - HEPATITIS [None]
  - PHARMACEUTICAL PRODUCT COMPLAINT [None]
